FAERS Safety Report 8197786-X (Version None)
Quarter: 2012Q1

REPORT INFORMATION
  Report Type: 
  Country: None (occurrence: None)
  Receive Date: 20120309
  Receipt Date: 20120302
  Transmission Date: 20120608
  Serious: Yes (Hospitalization)
  Sender: FDA-Public Use
  Company Number: GB-JNJFOC-20120301976

PATIENT
  Sex: Female

DRUGS (8)
  1. NAPROXEN [Concomitant]
  2. TRAMADOL HCL [Concomitant]
  3. SIMPONI [Suspect]
     Indication: PSORIATIC ARTHROPATHY
     Route: 058
     Dates: start: 20111001, end: 20111201
  4. FOLIC ACID [Concomitant]
  5. VALPROATE SODIUM [Concomitant]
  6. METHOTREXATE [Concomitant]
  7. OMEPRAZOLE [Concomitant]
  8. CITALOPRAM HYDROBROMIDE [Concomitant]

REACTIONS (7)
  - TONSILLITIS [None]
  - SINUSITIS [None]
  - BACK PAIN [None]
  - URINARY TRACT INFECTION [None]
  - INTERVERTEBRAL DISC PROTRUSION [None]
  - MOUTH ULCERATION [None]
  - WEIGHT INCREASED [None]
